FAERS Safety Report 9286430 (Version 1)
Quarter: 2013Q2

REPORT INFORMATION
  Report Type: Spontaneous
  Country: US (occurrence: None)
  Receive Date: 20130510
  Receipt Date: 20130510
  Transmission Date: 20140414
  Serious: Yes (Hospitalization)
  Sender: FDA-Public Use
  Company Number: None

PATIENT
  Age: 83 Year
  Sex: Male
  Weight: 145 kg

DRUGS (3)
  1. WARFARIN [Suspect]
     Indication: PULMONARY EMBOLISM
     Dosage: MWF/ESTTH??CHRONIC
     Route: 048
  2. DOXYCYCLINE [Suspect]
     Indication: PNEUMONIA
     Dosage: ID X 10 DAYS??RECENT
     Route: 048
  3. DOXYCYCLINE [Suspect]
     Indication: COUGH
     Dosage: ID X 10 DAYS??RECENT
     Route: 048

REACTIONS (4)
  - Cardiac failure congestive [None]
  - International normalised ratio increased [None]
  - Drug interaction [None]
  - Cough [None]
